FAERS Safety Report 23348091 (Version 3)
Quarter: 2025Q3

REPORT INFORMATION
  Report Type: Spontaneous
  Country: EU (occurrence: EU)
  Receive Date: 20231228
  Receipt Date: 20250814
  Transmission Date: 20251021
  Serious: Yes (Hospitalization, Disabling, Other)
  Sender: MYLAN
  Company Number: EU-THERAMEX-2023002551

PATIENT
  Age: 54 Year
  Sex: Female
  Weight: 52 kg

DRUGS (51)
  1. TRAMADOL [Suspect]
     Active Substance: TRAMADOL
     Indication: Pain
     Dosage: 2 DOSAGE FORM, QD, REDUCED HER TRAMADOL TREATMENT TO 2 UNITS A DAY
     Dates: start: 20220414
  2. TRAMADOL [Suspect]
     Active Substance: TRAMADOL
  3. CYPROTERONE [Suspect]
     Active Substance: CYPROTERONE
     Indication: Polycystic ovarian syndrome
  4. CYPROTERONE [Suspect]
     Active Substance: CYPROTERONE
  5. CYPROTERONE [Suspect]
     Active Substance: CYPROTERONE
  6. CYPROTERONE [Suspect]
     Active Substance: CYPROTERONE
     Indication: Polycystic ovarian syndrome
  7. CYPROTERONE [Suspect]
     Active Substance: CYPROTERONE
  8. NOMEGESTROL ACETATE [Suspect]
     Active Substance: NOMEGESTROL ACETATE
     Indication: Ovarian dysfunction
  9. NOMEGESTROL ACETATE [Suspect]
     Active Substance: NOMEGESTROL ACETATE
     Indication: Ovarian cyst
  10. CYPROTERONE ACETATE [Suspect]
     Active Substance: CYPROTERONE ACETATE
     Indication: Polycystic ovarian syndrome
  11. CYPROTERONE ACETATE [Suspect]
     Active Substance: CYPROTERONE ACETATE
  12. CYPROTERONE ACETATE [Suspect]
     Active Substance: CYPROTERONE ACETATE
  13. CYPROTERONE ACETATE [Suspect]
     Active Substance: CYPROTERONE ACETATE
  14. CYPROTERONE ACETATE [Suspect]
     Active Substance: CYPROTERONE ACETATE
  15. CYPROTERONE ACETATE [Suspect]
     Active Substance: CYPROTERONE ACETATE
  16. CYPROTERONE ACETATE [Suspect]
     Active Substance: CYPROTERONE ACETATE
  17. CYPROTERONE ACETATE [Suspect]
     Active Substance: CYPROTERONE ACETATE
  18. CYPROTERONE ACETATE [Suspect]
     Active Substance: CYPROTERONE ACETATE
  19. CYPROTERONE ACETATE [Suspect]
     Active Substance: CYPROTERONE ACETATE
     Indication: Polycystic ovarian syndrome
  20. CYPROTERONE ACETATE [Suspect]
     Active Substance: CYPROTERONE ACETATE
     Indication: Hyperandrogenism
  21. CYPROTERONE ACETATE [Suspect]
     Active Substance: CYPROTERONE ACETATE
     Indication: Hirsutism
  22. CYPROTERONE ACETATE [Suspect]
     Active Substance: CYPROTERONE ACETATE
  23. CYPROTERONE ACETATE [Suspect]
     Active Substance: CYPROTERONE ACETATE
  24. CYPROTERONE ACETATE [Suspect]
     Active Substance: CYPROTERONE ACETATE
  25. CYPROTERONE ACETATE [Suspect]
     Active Substance: CYPROTERONE ACETATE
  26. CYPROTERONE ACETATE [Suspect]
     Active Substance: CYPROTERONE ACETATE
  27. CYPROTERONE ACETATE [Suspect]
     Active Substance: CYPROTERONE ACETATE
  28. CYPROTERONE ACETATE [Suspect]
     Active Substance: CYPROTERONE ACETATE
  29. CYPROTERONE ACETATE [Suspect]
     Active Substance: CYPROTERONE ACETATE
  30. CYPROTERONE ACETATE [Suspect]
     Active Substance: CYPROTERONE ACETATE
  31. CYPROTERONE ACETATE [Suspect]
     Active Substance: CYPROTERONE ACETATE
  32. CYPROTERONE ACETATE [Suspect]
     Active Substance: CYPROTERONE ACETATE
  33. CYPROTERONE ACETATE [Suspect]
     Active Substance: CYPROTERONE ACETATE
  34. CYPROTERONE ACETATE [Suspect]
     Active Substance: CYPROTERONE ACETATE
  35. CYPROTERONE ACETATE [Suspect]
     Active Substance: CYPROTERONE ACETATE
  36. CYPROTERONE [Suspect]
     Active Substance: CYPROTERONE
     Indication: Product used for unknown indication
  37. CYPROTERONE [Suspect]
     Active Substance: CYPROTERONE
  38. CYPROTERONE [Suspect]
     Active Substance: CYPROTERONE
  39. ESTRADIOL [Concomitant]
     Active Substance: ESTRADIOL
     Indication: Product used for unknown indication
     Dates: start: 20010611, end: 20021011
  40. ESTRADIOL [Concomitant]
     Active Substance: ESTRADIOL
  41. ESTRADIOL [Concomitant]
     Active Substance: ESTRADIOL
  42. ESTRADIOL [Concomitant]
     Active Substance: ESTRADIOL
  43. ESTRADIOL [Concomitant]
     Active Substance: ESTRADIOL
  44. ESTRADIOL [Concomitant]
     Active Substance: ESTRADIOL
  45. ESTRADIOL [Concomitant]
     Active Substance: ESTRADIOL
  46. ESTRADIOL [Concomitant]
     Active Substance: ESTRADIOL
  47. ESTRADIOL [Concomitant]
     Active Substance: ESTRADIOL
     Dates: start: 20181010, end: 20200228
  48. CYPROTERONE ACETATE [Concomitant]
     Active Substance: CYPROTERONE ACETATE
     Indication: Polycystic ovarian syndrome
  49. CYPROTERONE ACETATE [Concomitant]
     Active Substance: CYPROTERONE ACETATE
  50. CYPROTERONE ACETATE [Concomitant]
     Active Substance: CYPROTERONE ACETATE
  51. CYPROTERONE ACETATE [Concomitant]
     Active Substance: CYPROTERONE ACETATE

REACTIONS (42)
  - Face oedema [Unknown]
  - Muscle atrophy [Unknown]
  - Facial wasting [Unknown]
  - Sick leave [Unknown]
  - Meningioma [Recovered/Resolved with Sequelae]
  - Irritability [Not Recovered/Not Resolved]
  - Drug abuse [Unknown]
  - Disability [Unknown]
  - Back pain [Not Recovered/Not Resolved]
  - Dehiscence [Unknown]
  - Impaired work ability [Unknown]
  - Disturbance in attention [Not Recovered/Not Resolved]
  - Insomnia [Not Recovered/Not Resolved]
  - Pain [Unknown]
  - Fatigue [Not Recovered/Not Resolved]
  - Drug dependence [Unknown]
  - Headache [Not Recovered/Not Resolved]
  - Neuropathy peripheral [Not Recovered/Not Resolved]
  - Arthralgia [Not Recovered/Not Resolved]
  - Asthenia [Not Recovered/Not Resolved]
  - Libido decreased [Unknown]
  - Poor quality sleep [Unknown]
  - Peritoneal disorder [Unknown]
  - Depression [Unknown]
  - Hyperacusis [Not Recovered/Not Resolved]
  - Apathy [Unknown]
  - Cystitis [Unknown]
  - Pollakiuria [Unknown]
  - Migraine [Unknown]
  - Deformity [Not Recovered/Not Resolved]
  - Discomfort [Not Recovered/Not Resolved]
  - Loss of personal independence in daily activities [Not Recovered/Not Resolved]
  - Photophobia [Not Recovered/Not Resolved]
  - Anxiety [Not Recovered/Not Resolved]
  - Spider vein [Not Recovered/Not Resolved]
  - Anger [Unknown]
  - Scar [Not Recovered/Not Resolved]
  - Amnesia [Not Recovered/Not Resolved]
  - Aphasia [Not Recovered/Not Resolved]
  - Gait disturbance [Not Recovered/Not Resolved]
  - Visual acuity reduced [Not Recovered/Not Resolved]
  - Depressed mood [Unknown]

NARRATIVE: CASE EVENT DATE: 20160201
